FAERS Safety Report 16850125 (Version 1)
Quarter: 2019Q3

REPORT INFORMATION
  Report Type: Spontaneous
  Country: ES (occurrence: ES)
  Receive Date: 20190925
  Receipt Date: 20190925
  Transmission Date: 20191005
  Serious: Yes (Other)
  Sender: FDA-Public Use
  Company Number: ES-SAMSUNG BIOEPIS-SB-2019-27873

PATIENT
  Age: 22 Year
  Sex: Male

DRUGS (1)
  1. ADALIMUMAB [Suspect]
     Active Substance: ADALIMUMAB
     Indication: ALOPECIA SCARRING
     Dosage: UNKNOWN
     Route: 065

REACTIONS (2)
  - Leishmaniasis [Recovered/Resolved]
  - Off label use [Unknown]
